FAERS Safety Report 7623493-5 (Version None)
Quarter: 2011Q3

REPORT INFORMATION
  Report Type: 
  Country: None (occurrence: None)
  Receive Date: 20110720
  Receipt Date: 20110714
  Transmission Date: 20111222
  Serious: Yes (Disabling)
  Sender: FDA-Public Use
  Company Number: US-B.I. PHARMACEUTICALS,INC./RIDGEFIELD-2011-BP-16387BP

PATIENT
  Age: 60 Year
  Sex: Female
  Weight: 54.43 kg

DRUGS (7)
  1. SPIRIVA [Suspect]
     Dates: start: 20110605, end: 20110607
  2. SEROQUEL [Concomitant]
     Dosage: 300 NR
  3. KLONOPIN [Concomitant]
  4. SYMBICORD [Concomitant]
  5. REMERON [Concomitant]
     Dosage: 15 NR
  6. CYMBALTA [Concomitant]
     Dosage: 60 NR
  7. ALBUTEROL SULFATE AUTOHALER [Concomitant]

REACTIONS (1)
  - URINARY RETENTION [None]
